FAERS Safety Report 5166119-5 (Version None)
Quarter: 2006Q4

REPORT INFORMATION
  Report Type: 
  Country: None (occurrence: None)
  Receive Date: 20061129
  Receipt Date: 20061114
  Transmission Date: 20070319
  Serious: Yes (Hospitalization, Other)
  Sender: FDA-Public Use
  Company Number: US-2006-023815

PATIENT
  Age: 50 Year
  Sex: Female
  Weight: 180 kg

DRUGS (8)
  1. ULTRAVIST 370 [Suspect]
     Indication: ARTERIOGRAM CORONARY
     Dosage: 131 ML, TOTAL DOSE, INTRA-ARTERIAL
     Route: 013
     Dates: start: 20050531, end: 20050531
  2. NITROGLYCERIN [Concomitant]
  3. ATENOLOL [Concomitant]
  4. ENTERIC ASPIRIN (ACETYLSALICYLIC ACID) [Concomitant]
  5. LISINOPRIL [Concomitant]
  6. PREMARIN [Concomitant]
  7. PEPCID [Concomitant]
  8. IBUPROFEN [Concomitant]

REACTIONS (23)
  - ACTIVITIES OF DAILY LIVING IMPAIRED [None]
  - ATELECTASIS [None]
  - BODY TEMPERATURE INCREASED [None]
  - CEREBELLAR SYNDROME [None]
  - CEREBROVASCULAR ACCIDENT [None]
  - DRUG HYPERSENSITIVITY [None]
  - ENCEPHALOPATHY [None]
  - EYE IRRITATION [None]
  - FACIAL PALSY [None]
  - HALLUCINATION, VISUAL [None]
  - HYPERAMMONAEMIA [None]
  - HYPOAESTHESIA [None]
  - LEUKOARAIOSIS [None]
  - NAUSEA [None]
  - PARAESTHESIA [None]
  - PARTIAL SEIZURES WITH SECONDARY GENERALISATION [None]
  - RASH MACULO-PAPULAR [None]
  - RED BLOOD CELL SEDIMENTATION RATE INCREASED [None]
  - STATUS EPILEPTICUS [None]
  - URINARY INCONTINENCE [None]
  - VERTIGO POSITIONAL [None]
  - VISION BLURRED [None]
  - VOMITING [None]
